FAERS Safety Report 6942553-5 (Version None)
Quarter: 2010Q3

REPORT INFORMATION
  Report Type: 
  Country: None (occurrence: None)
  Receive Date: 20100823
  Receipt Date: 20100811
  Transmission Date: 20110219
  Serious: Yes (Other)
  Sender: FDA-Public Use
  Company Number: 2010SP032657

PATIENT
  Age: 40 Year
  Sex: Female

DRUGS (2)
  1. ORGALUTRAN (GANIRELIX /01453701/) [Suspect]
     Indication: IN VITRO FERTILISATION
     Dosage: 1 DF;QD;SC
     Route: 058
     Dates: start: 20100531, end: 20100607
  2. GONAL-F [Concomitant]

REACTIONS (6)
  - FATIGUE [None]
  - HEADACHE [None]
  - NAUSEA [None]
  - OROPHARYNGEAL PAIN [None]
  - VIRAL INFECTION [None]
  - VOMITING [None]
